FAERS Safety Report 13401608 (Version 3)
Quarter: 2020Q3

REPORT INFORMATION
  Report Type: Report from Study
  Country: AU (occurrence: AU)
  Receive Date: 20170404
  Receipt Date: 20170421
  Transmission Date: 20201105
  Serious: Yes (Hospitalization)
  Sender: FDA-Public Use
  Company Number: AU-JNJFOC-20170333393

PATIENT
  Age: 72 Year
  Sex: Male
  Weight: 81.1 kg

DRUGS (3)
  1. NIVOLUMAB [Suspect]
     Active Substance: NIVOLUMAB
     Indication: HAEMATOLOGICAL MALIGNANCY
     Route: 042
     Dates: start: 20160317
  2. IBRUTINIB [Suspect]
     Active Substance: IBRUTINIB
     Route: 048
  3. IBRUTINIB [Suspect]
     Active Substance: IBRUTINIB
     Indication: HAEMATOLOGICAL MALIGNANCY
     Route: 048
     Dates: start: 20160310

REACTIONS (1)
  - Febrile neutropenia [Recovered/Resolved]

NARRATIVE: CASE EVENT DATE: 20170328
